FAERS Safety Report 7415415-7 (Version None)
Quarter: 2011Q2

REPORT INFORMATION
  Report Type: 
  Country: None (occurrence: None)
  Receive Date: 20110414
  Receipt Date: 20110404
  Transmission Date: 20111010
  Serious: Yes (Hospitalization, Other)
  Sender: FDA-Public Use
  Company Number: US-JNJFOC-20110402675

PATIENT
  Sex: Male
  Weight: 79.38 kg

DRUGS (2)
  1. DURAGESIC [Suspect]
     Indication: DIABETIC NEUROPATHY
     Dosage: 100UG/HR ONCE EVERY 2-3 DAYS
     Route: 062
  2. DURAGESIC [Suspect]
     Dosage: 100UG/HR ONCE EVERY 2-3 DAYS
     Route: 062

REACTIONS (4)
  - FALL [None]
  - DIZZINESS [None]
  - RENAL FAILURE [None]
  - FOOT FRACTURE [None]
